FAERS Safety Report 18029748 (Version 2)
Quarter: 2020Q3

REPORT INFORMATION
  Report Type: Spontaneous
  Country: JP (occurrence: JP)
  Receive Date: 20200715
  Receipt Date: 20200722
  Transmission Date: 20201103
  Serious: Yes (Hospitalization, Other)
  Sender: FDA-Public Use
  Company Number: JP-GLAXOSMITHKLINE-JP2020JPN122049

PATIENT
  Age: 8 Decade
  Sex: Male

DRUGS (11)
  1. QUETIAPINE. [Suspect]
     Active Substance: QUETIAPINE
     Dosage: AFTER BREAKFAST AND DINNER, 25MG EACH AND AT BEDTIME 100MG, TID
     Route: 048
  2. QUETIAPINE. [Suspect]
     Active Substance: QUETIAPINE
     Dosage: AFTER BREAKFAST AND DINNER, 25MG EACH AND AT BEDTIME 200MG, TID
     Route: 048
  3. LITHIUM CARBONATE. [Suspect]
     Active Substance: LITHIUM CARBONATE
     Dosage: 200 MG, BID
     Route: 048
  4. LAMICTAL [Suspect]
     Active Substance: LAMOTRIGINE
     Indication: BIPOLAR DISORDER
     Dosage: 50 MG, BID
     Route: 048
  5. QUETIAPINE. [Suspect]
     Active Substance: QUETIAPINE
     Dosage: 400 MG, QD
     Route: 048
  6. LEVOMEPROMAZINE [Suspect]
     Active Substance: LEVOMEPROMAZINE
     Dosage: 10 MG, QD
  7. LITHIUM CARBONATE. [Suspect]
     Active Substance: LITHIUM CARBONATE
     Dosage: MORNING 400MG, LUNCH 100MG, EVENING 100MG, TID
     Route: 048
  8. NITRAZEPAM [Suspect]
     Active Substance: NITRAZEPAM
     Dosage: 10 MG, QD
     Route: 048
  9. FLUNITRAZEPAM [Suspect]
     Active Substance: FLUNITRAZEPAM
     Dosage: 2 MG, QD
  10. ESZOPICLONE. [Suspect]
     Active Substance: ESZOPICLONE
     Dosage: 2 MG, QD
     Route: 048
  11. DONEPEZIL HYDROCHLORIDE. [Suspect]
     Active Substance: DONEPEZIL HYDROCHLORIDE
     Dosage: 5 MG, QD

REACTIONS (16)
  - Serotonin syndrome [Unknown]
  - Chills [Unknown]
  - Cerebral atrophy [Unknown]
  - Hyperhidrosis [Recovering/Resolving]
  - Mania [Unknown]
  - Body temperature increased [Unknown]
  - Hallucination, visual [Unknown]
  - Irritability [Recovering/Resolving]
  - Myoclonus [Recovered/Resolved]
  - Insomnia [Unknown]
  - Tremor [Recovering/Resolving]
  - Hypernatraemia [Unknown]
  - Faeces discoloured [Unknown]
  - Renal impairment [Unknown]
  - Pneumonia [Unknown]
  - Gastric ulcer haemorrhage [Unknown]
